FAERS Safety Report 7561325-4 (Version None)
Quarter: 2011Q2

REPORT INFORMATION
  Report Type: 
  Country: None (occurrence: None)
  Receive Date: 20110621
  Receipt Date: 20101116
  Transmission Date: 20111010
  Serious: No
  Sender: FDA-Public Use
  Company Number: US-ASTRAZENECA-2010SE54689

PATIENT
  Sex: Male

DRUGS (2)
  1. PULMICORT FLEXHALER [Suspect]
     Indication: ASTHMA
     Dosage: 180 MCG
     Route: 055
     Dates: start: 20000101
  2. ALBUTEROL SULFATE AUTOHALER [Concomitant]

REACTIONS (2)
  - PHARYNGITIS [None]
  - DYSPNOEA [None]
